FAERS Safety Report 21756976 (Version 1)
Quarter: 2022Q4

REPORT INFORMATION
  Report Type: Spontaneous
  Country: US (occurrence: None)
  Receive Date: 20221220
  Receipt Date: 20221220
  Transmission Date: 20230113
  Serious: No
  Sender: FDA-Public Use
  Company Number: 2022A397721

PATIENT
  Sex: Female

DRUGS (1)
  1. SYMBICORT [Suspect]
     Active Substance: BUDESONIDE\FORMOTEROL FUMARATE DIHYDRATE
     Indication: Adverse drug reaction
     Route: 055

REACTIONS (5)
  - Device use issue [Unknown]
  - Product dose omission issue [Unknown]
  - Wrong technique in device usage process [Unknown]
  - Dyspnoea [Not Recovered/Not Resolved]
  - Lung disorder [Unknown]
